FAERS Safety Report 5687708-5 (Version None)
Quarter: 2008Q1

REPORT INFORMATION
  Report Type: 
  Country: None (occurrence: None)
  Receive Date: 20080328
  Receipt Date: 20080312
  Transmission Date: 20080703
  Serious: Yes (Other)
  Sender: FDA-Public Use
  Company Number: US-BAYER-200810313BCC

PATIENT
  Age: 38 Year
  Sex: Male

DRUGS (7)
  1. ASPIRIN [Suspect]
     Indication: HEADACHE
     Dosage: UNIT DOSE: 325 MG
     Route: 048
     Dates: start: 20080110, end: 20080101
  2. AMPHOTERICIN B [Suspect]
     Indication: SINUSITIS
     Route: 045
     Dates: start: 20071101
  3. SINGULAIR [Concomitant]
  4. ZYRTEC [Concomitant]
  5. PROAIR HFA [Concomitant]
     Indication: ASTHMA
     Route: 055
  6. SYMBICORT [Concomitant]
     Route: 055
  7. IMMUNOTHERAPY ALLERGY SHOTS [Concomitant]

REACTIONS (5)
  - DYSPNOEA [None]
  - FEELING HOT [None]
  - HEADACHE [None]
  - HYPERSENSITIVITY [None]
  - RASH ERYTHEMATOUS [None]
